FAERS Safety Report 8139582-5 (Version None)
Quarter: 2012Q1

REPORT INFORMATION
  Report Type: 
  Country: None (occurrence: None)
  Receive Date: 20120215
  Receipt Date: 20120203
  Transmission Date: 20120608
  Serious: Yes (Hospitalization, Other)
  Sender: FDA-Public Use
  Company Number: PHHY2012JP006829

PATIENT
  Sex: Female

DRUGS (15)
  1. CANDESARTAN CILEXETIL [Concomitant]
     Dosage: 8 MG, UNK
     Route: 048
     Dates: start: 20120112
  2. INDAPAMIDE [Concomitant]
     Dosage: 0.5 MG, UNK
     Route: 048
     Dates: start: 20120112
  3. ASPIRIN [Concomitant]
     Dosage: 100 MG, UNK
     Route: 048
     Dates: end: 20120121
  4. VANCOMYCIN [Concomitant]
     Dosage: 10 MG, UNK
     Route: 048
     Dates: start: 20120112
  5. FAMVIR [Suspect]
     Dosage: 500 MG, QD
     Route: 048
     Dates: start: 20120115, end: 20120117
  6. SELBEX [Concomitant]
     Dosage: 100 MG, UNK
     Route: 048
     Dates: start: 20120112, end: 20120117
  7. LANSOPRAZOLE [Concomitant]
     Dosage: 15 MG, UNK
     Route: 048
     Dates: start: 20120112
  8. PREDNISOLONE [Concomitant]
     Dosage: 5 MG, UNK
     Route: 048
     Dates: start: 20120112, end: 20120117
  9. PREDNISOLONE [Concomitant]
     Dosage: 2 MG, UNK
     Dates: start: 20120112, end: 20120117
  10. METHYCOBAL [Concomitant]
     Dosage: 1000 UG, UNK
     Route: 048
     Dates: start: 20120112, end: 20120117
  11. MAGMITT [Concomitant]
     Dosage: 1320 MG, UNK
     Route: 048
  12. AMLODIPINE [Concomitant]
     Dosage: 2.5 MG, UNK
     Route: 048
     Dates: start: 20120112
  13. ADOFEED [Concomitant]
     Route: 061
     Dates: start: 20120112
  14. FAMVIR [Suspect]
     Indication: HERPES ZOSTER
     Dosage: 750 MG, QD
     Route: 048
     Dates: start: 20120112, end: 20120114
  15. ETODOLAC [Concomitant]
     Dosage: 400 MG, UNK
     Route: 048
     Dates: start: 20120112, end: 20120117

REACTIONS (16)
  - ASPARTATE AMINOTRANSFERASE INCREASED [None]
  - BLOOD CREATINE PHOSPHOKINASE INCREASED [None]
  - BLOOD UREA INCREASED [None]
  - MALAISE [None]
  - RHABDOMYOLYSIS [None]
  - GAMMA-GLUTAMYLTRANSFERASE INCREASED [None]
  - GAIT DISTURBANCE [None]
  - APPETITE DISORDER [None]
  - ALANINE AMINOTRANSFERASE INCREASED [None]
  - BLOOD ALKALINE PHOSPHATASE INCREASED [None]
  - RENAL DISORDER [None]
  - BLOOD LACTATE DEHYDROGENASE INCREASED [None]
  - PYREXIA [None]
  - BLOOD CREATININE INCREASED [None]
  - BLOOD GLUCOSE INCREASED [None]
  - WHITE BLOOD CELL COUNT INCREASED [None]
